FAERS Safety Report 13658827 (Version 2)
Quarter: 2017Q2

REPORT INFORMATION
  Report Type: Spontaneous
  Country: AR (occurrence: AR)
  Receive Date: 20170616
  Receipt Date: 20170627
  Transmission Date: 20170830
  Serious: Yes (Death, Hospitalization, Other)
  Sender: FDA-Public Use
  Company Number: AR-ACCORD-052551

PATIENT
  Age: 77 Year
  Sex: Male

DRUGS (2)
  1. LEUPRORELIN/LEUPRORELIN ACETATE [Suspect]
     Active Substance: LEUPROLIDE ACETATE
     Indication: PROSTATE CANCER METASTATIC
  2. BICALUTAMIDE. [Suspect]
     Active Substance: BICALUTAMIDE
     Indication: PROSTATE CANCER METASTATIC
     Dosage: GREATER THAN 50 MG / DAY

REACTIONS (4)
  - Respiratory failure [Unknown]
  - Atrial fibrillation [Unknown]
  - Interstitial lung disease [Fatal]
  - Acute pulmonary oedema [Fatal]
